FAERS Safety Report 8836431 (Version 1)
Quarter: 2012Q4

REPORT INFORMATION
  Report Type: 
  Country: US (occurrence: US)
  Receive Date: 20121011
  Receipt Date: 20121011
  Transmission Date: 20130627
  Serious: Yes (Other)
  Sender: FDA-Public Use
  Company Number: US-PFIZER INC-2012250858

PATIENT
  Age: 14 Year
  Sex: Male
  Weight: 49.9 kg

DRUGS (3)
  1. SERTRALINE HCL [Suspect]
     Dosage: 0.05 ml daily
     Route: 048
     Dates: start: 201209, end: 20121005
  2. SERTRALINE HCL [Suspect]
     Dosage: 0.08 ml daily
     Route: 048
     Dates: start: 20121006
  3. ADDERALL [Suspect]
     Indication: ATTENTION DEFICIT/HYPERACTIVITY DISORDER
     Dosage: UNK
     Dates: start: 2012, end: 201209

REACTIONS (11)
  - Intentional self-injury [Unknown]
  - Incorrect dose administered [Unknown]
  - Intentional overdose [Unknown]
  - Panic disorder [Unknown]
  - Disturbance in attention [Unknown]
  - Psychomotor hyperactivity [Unknown]
  - Abnormal behaviour [Unknown]
  - Restlessness [Unknown]
  - Fear of eating [Unknown]
  - Dizziness [Unknown]
  - Fatigue [Unknown]
